FAERS Safety Report 14890851 (Version 1)
Quarter: 2018Q2

REPORT INFORMATION
  Report Type: Spontaneous
  Country: US (occurrence: US)
  Receive Date: 20180514
  Receipt Date: 20180514
  Transmission Date: 20180711
  Serious: Yes (Other)
  Sender: FDA-Public Use
  Company Number: US-PFIZER INC-2018194902

PATIENT

DRUGS (8)
  1. NEXIUM 24HR [Suspect]
     Active Substance: ESOMEPRAZOLE MAGNESIUM
  2. NEXIUM [Suspect]
     Active Substance: ESOMEPRAZOLE MAGNESIUM
  3. PREVACID [Suspect]
     Active Substance: LANSOPRAZOLE
  4. DEXILANT [Suspect]
     Active Substance: DEXLANSOPRAZOLE
  5. PRILOSEC [Suspect]
     Active Substance: OMEPRAZOLE MAGNESIUM
  6. PROTONIX [Suspect]
     Active Substance: PANTOPRAZOLE SODIUM
  7. PREVACID 24 HR [Suspect]
     Active Substance: LANSOPRAZOLE
  8. PRILOSEC OTC [Suspect]
     Active Substance: OMEPRAZOLE MAGNESIUM

REACTIONS (1)
  - Chronic kidney disease [Unknown]
